FAERS Safety Report 6154303-3 (Version None)
Quarter: 2009Q2

REPORT INFORMATION
  Report Type: 
  Country: None (occurrence: None)
  Receive Date: 20090410
  Receipt Date: 20090324
  Transmission Date: 20091009
  Serious: Yes (Hospitalization)
  Sender: FDA-Public Use
  Company Number: 2009AP001235

PATIENT
  Age: 55 Year
  Sex: Male

DRUGS (2)
  1. AMIODARONE HCL [Suspect]
     Dosage: PO, TAB; PO
     Route: 048
     Dates: end: 20080601
  2. INVESTIGATIONAL DRUG (INVESTIGATIONAL DRUG) [Suspect]
     Indication: PROPHYLAXIS AGAINST TRANSPLANT REJECTION
     Dosage: 1 GM; BID PO
     Route: 048
     Dates: start: 20080503

REACTIONS (6)
  - DYSPHONIA [None]
  - DYSPNOEA [None]
  - HYPERTHYROIDISM [None]
  - RENAL FAILURE ACUTE [None]
  - THYROID NEOPLASM [None]
  - TRACHEAL OBSTRUCTION [None]
